FAERS Safety Report 7260791-1 (Version None)
Quarter: 2011Q1

REPORT INFORMATION
  Report Type: 
  Country: None (occurrence: None)
  Receive Date: 20110130
  Receipt Date: 20101122
  Transmission Date: 20110831
  Serious: No
  Sender: FDA-Public Use
  Company Number: US-ABBOTT-10P-163-0687159-00

PATIENT
  Age: 34 Year
  Sex: Male

DRUGS (5)
  1. METOPROLOL [Concomitant]
     Indication: HYPERTENSION
  2. HUMIRA [Suspect]
     Indication: PSORIASIS
     Dates: start: 20100301, end: 20100901
  3. NEXIUM [Concomitant]
     Indication: GASTRITIS
  4. METFORMIN [Concomitant]
     Indication: GLUCOSE TOLERANCE IMPAIRED
  5. IBUPROFEN [Concomitant]
     Indication: PAIN

REACTIONS (5)
  - LYMPHOEDEMA [None]
  - INFECTION [None]
  - GASTROENTERITIS VIRAL [None]
  - INFLUENZA [None]
  - PSORIASIS [None]
